FAERS Safety Report 16230699 (Version 6)
Quarter: 2019Q3

REPORT INFORMATION
  Report Type: Spontaneous
  Country: ES (occurrence: ES)
  Receive Date: 20190423
  Receipt Date: 20190923
  Transmission Date: 20191004
  Serious: Yes (Other)
  Sender: FDA-Public Use
  Company Number: ES-PFIZER INC-2019063578

PATIENT
  Age: 69 Year
  Sex: Male

DRUGS (5)
  1. RIFAMPICIN [Suspect]
     Active Substance: RIFAMPIN
     Indication: ENDOCARDITIS
     Dosage: UNK
     Route: 065
  2. FLUCONAZOLE. [Suspect]
     Active Substance: FLUCONAZOLE
     Indication: ENDOCARDITIS
     Dosage: UNK
     Route: 065
  3. VANCOMYCIN HCL [Suspect]
     Active Substance: VANCOMYCIN HYDROCHLORIDE
     Indication: ENDOCARDITIS
     Dosage: UNK
     Route: 065
  4. GENTAMICIN SULFATE. [Suspect]
     Active Substance: GENTAMICIN SULFATE
     Dosage: 280 MG, UNK
  5. GENTAMICIN SULFATE. [Suspect]
     Active Substance: GENTAMICIN SULFATE
     Indication: ENDOCARDITIS
     Dosage: UNK
     Route: 065

REACTIONS (5)
  - Rash [Unknown]
  - Hepatic enzyme abnormal [Unknown]
  - Pruritus [Unknown]
  - Urticaria [Unknown]
  - Toxicity to various agents [Unknown]
